FAERS Safety Report 16309688 (Version 2)
Quarter: 2019Q3

REPORT INFORMATION
  Report Type: Report from Study
  Country: DE (occurrence: DE)
  Receive Date: 20190514
  Receipt Date: 20190823
  Transmission Date: 20191004
  Serious: Yes (Other)
  Sender: FDA-Public Use
  Company Number: DE-JNJFOC-20190514538

PATIENT
  Age: 58 Year
  Sex: Female
  Weight: 82 kg

DRUGS (6)
  1. NEBILET [Concomitant]
     Active Substance: NEBIVOLOL
  2. RIVAROXABAN [Suspect]
     Active Substance: RIVAROXABAN
     Indication: PRODUCT USED FOR UNKNOWN INDICATION
     Dosage: 20 MG, QD
     Route: 048
  3. TOREM [Concomitant]
     Active Substance: TORSEMIDE
  4. ADENURIC [Concomitant]
     Active Substance: FEBUXOSTAT
  5. JARDIANCE [Concomitant]
     Active Substance: EMPAGLIFLOZIN
  6. DIGITOXINE [Concomitant]

REACTIONS (2)
  - Haemorrhagic transformation stroke [Recovered/Resolved with Sequelae]
  - Myocardial infarction [Recovered/Resolved with Sequelae]

NARRATIVE: CASE EVENT DATE: 20190203
